FAERS Safety Report 11967536 (Version 2)
Quarter: 2016Q1

REPORT INFORMATION
  Report Type: Report from Study
  Country: AU (occurrence: AU)
  Receive Date: 20160127
  Receipt Date: 20160208
  Transmission Date: 20160526
  Serious: Yes (Hospitalization)
  Sender: FDA-Public Use
  Company Number: AU-ABBVIE-16P-008-1543062-00

PATIENT
  Age: 59 Year

DRUGS (5)
  1. SERETIDE [Concomitant]
     Active Substance: FLUTICASONE FUROATE\SALMETEROL XINAFOATE
     Indication: ASTHMA
     Dosage: 500MCG/50MCG, 1-2 PUFFS DAILY
     Route: 055
  2. ULTIBRO BREEZHALER [Concomitant]
     Active Substance: GLYCOPYRRONIUM\INDACATEROL
     Indication: PRODUCT USED FOR UNKNOWN INDICATION
  3. PERINDOPRIL [Concomitant]
     Active Substance: PERINDOPRIL
     Indication: HYPERTENSION
     Dates: start: 2014
  4. RIBAVIRIN. [Suspect]
     Active Substance: RIBAVIRIN
     Indication: HEPATITIS C
     Dosage: 600 MG BD
     Route: 048
     Dates: start: 20151017, end: 20160101
  5. VIEKIRA PAK [Suspect]
     Active Substance: DASABUVIR\OMBITASVIR\PARITAPREVIR\RITONAVIR
     Indication: HEPATITIS C
     Route: 048
     Dates: start: 20151017, end: 20160101

REACTIONS (8)
  - Tremor [Recovering/Resolving]
  - Blood cortisol decreased [Recovering/Resolving]
  - Lower respiratory tract infection [Recovering/Resolving]
  - Adrenal suppression [Recovering/Resolving]
  - Lethargy [Recovering/Resolving]
  - Asthma [Recovering/Resolving]
  - Cushing^s syndrome [Recovering/Resolving]
  - Cortisol free urine decreased [Recovering/Resolving]

NARRATIVE: CASE EVENT DATE: 20151230
